FAERS Safety Report 16877857 (Version 1)
Quarter: 2019Q4

REPORT INFORMATION
  Report Type: Spontaneous
  Country: US (occurrence: US)
  Receive Date: 20191002
  Receipt Date: 20191002
  Transmission Date: 20200122
  Serious: Yes (Death, Hospitalization, Other)
  Sender: FDA-Public Use
  Company Number: US-AMGEN-USASP2019156754

PATIENT
  Age: 53 Year
  Sex: Male

DRUGS (7)
  1. EPOGEN [Suspect]
     Active Substance: ERYTHROPOIETIN
     Indication: PRODUCT USED FOR UNKNOWN INDICATION
     Dosage: 10000 UNIT, 3 TIMES/WK (DAYS 4-27, 2 TRANSFUSIONS DAY 17 AND 21, 40000 UNITS WEEKLY)
     Route: 065
     Dates: start: 20040112, end: 200402
  2. CARBAMAZEPINE. [Concomitant]
     Active Substance: CARBAMAZEPINE
     Indication: EPILEPSY
     Dosage: UNK
     Dates: end: 200401
  3. FILGRASTIM [Suspect]
     Active Substance: FILGRASTIM
     Indication: NEUTROPENIA
     Dosage: 480 MICROGRAM, QD (FOR 23 DAYS, DAYS 4-27, 10 TRANSFUSION, 6 UNITS EACH FROM DAY 10-26)
     Route: 065
     Dates: start: 20040112, end: 200402
  4. TEMOZOLOMIDE. [Concomitant]
     Active Substance: TEMOZOLOMIDE
     Indication: GLIOBLASTOMA MULTIFORME
     Dosage: 2750 MILLIGRAM, QD (TOTAL OF 5,500 MG (2835 MG/M2)
     Dates: start: 20040109
  5. FLUCONAZOLE. [Concomitant]
     Active Substance: FLUCONAZOLE
     Indication: PROPHYLAXIS
     Dosage: UNK
     Dates: start: 200401
  6. ACYCLOVIR [ACICLOVIR] [Concomitant]
     Active Substance: ACYCLOVIR
     Indication: PROPHYLAXIS
     Dosage: UNK
     Dates: start: 200401
  7. TOPIRAMATE. [Concomitant]
     Active Substance: TOPIRAMATE
     Indication: PROPHYLAXIS
     Dosage: UNK
     Dates: start: 200401

REACTIONS (12)
  - Atelectasis [Recovered/Resolved]
  - White blood cell count decreased [Recovering/Resolving]
  - Serratia bacteraemia [Unknown]
  - Cellulitis [Unknown]
  - Disease progression [Fatal]
  - Platelet count decreased [Unknown]
  - Depressed level of consciousness [Unknown]
  - Hepatotoxicity [Recovering/Resolving]
  - Neutrophil count decreased [Recovering/Resolving]
  - Bone marrow failure [Unknown]
  - Tooth abscess [Unknown]
  - Confusional state [Unknown]

NARRATIVE: CASE EVENT DATE: 200401
